FAERS Safety Report 13803845 (Version 3)
Quarter: 2017Q4

REPORT INFORMATION
  Report Type: Spontaneous
  Country: US (occurrence: US)
  Receive Date: 20170728
  Receipt Date: 20171027
  Transmission Date: 20180320
  Serious: No
  Sender: FDA-Public Use
  Company Number: PHEH2017US022186

PATIENT
  Sex: Female

DRUGS (1)
  1. TEGRETOL [Suspect]
     Active Substance: CARBAMAZEPINE
     Indication: PRODUCT USED FOR UNKNOWN INDICATION
     Dosage: 2 DF, BID (TWO PILLS IN THE MORNING AND TWO AT NIGHT)
     Route: 065

REACTIONS (4)
  - Drug dispensing error [Unknown]
  - Feeling abnormal [Unknown]
  - Nervousness [Unknown]
  - Fatigue [Unknown]
